FAERS Safety Report 8809913 (Version 1)
Quarter: 2012Q4

REPORT INFORMATION
  Report Type: 
  Country: US (occurrence: US)
  Receive Date: 20120926
  Receipt Date: 20120926
  Transmission Date: 20130627
  Serious: No
  Sender: FDA-Public Use
  Company Number: US-BAYER-2012-096396

PATIENT
  Age: 68 Year
  Sex: Female

DRUGS (1)
  1. CLIMARA PRO [Suspect]
     Indication: HOT FLUSH
     Dosage: 0.045mg/0.015mg/day
     Route: 062
     Dates: start: 201207

REACTIONS (1)
  - Hot flush [Not Recovered/Not Resolved]
